FAERS Safety Report 5755589-7 (Version None)
Quarter: 2008Q2

REPORT INFORMATION
  Report Type: 
  Country: None (occurrence: None)
  Receive Date: 20080602
  Receipt Date: 20080526
  Transmission Date: 20081010
  Serious: Yes (Hospitalization)
  Sender: FDA-Public Use
  Company Number: US-MERCK-0805USA05668

PATIENT
  Age: 34 Year
  Sex: Male

DRUGS (1)
  1. MECTIZAN [Suspect]
     Indication: ONCHOCERCIASIS
     Route: 048
     Dates: start: 20080510, end: 20080510

REACTIONS (7)
  - APHASIA [None]
  - ASTHENIA [None]
  - BACK PAIN [None]
  - CONJUNCTIVAL HAEMORRHAGE [None]
  - DEPRESSED LEVEL OF CONSCIOUSNESS [None]
  - DISORIENTATION [None]
  - URINARY INCONTINENCE [None]
